FAERS Safety Report 9197153 (Version 2)
Quarter: 2013Q2

REPORT INFORMATION
  Report Type: Report from Study
  Country: FR (occurrence: FR)
  Receive Date: 20130328
  Receipt Date: 20130405
  Transmission Date: 20140414
  Serious: Yes (Life-Threatening, Hospitalization)
  Sender: FDA-Public Use
  Company Number: FR-ROCHE-1165691

PATIENT
  Age: 65 Year
  Sex: Female
  Weight: 56.5 kg

DRUGS (22)
  1. ADO-TRASTUZUMAB EMTANSINE [Suspect]
     Indication: BREAST CANCER METASTATIC
     Dosage: MOST RECENT DOSE (198MG) ADMINISTERED ON 19/FEB/2013
     Route: 042
     Dates: start: 20121016
  2. SKENAN [Concomitant]
     Indication: INTERVERTEBRAL DISC PROTRUSION
     Route: 065
     Dates: start: 20121026
  3. TIMOPTOL [Concomitant]
     Indication: OCULAR HYPERTENSION
     Route: 065
     Dates: start: 1995
  4. ACTISKENAN [Concomitant]
     Indication: INTERVERTEBRAL DISC PROTRUSION
     Route: 065
     Dates: start: 20121026
  5. MOTILIUM (FRANCE) [Concomitant]
     Indication: NAUSEA
     Route: 065
     Dates: start: 20121026
  6. FORLAX (FRANCE) [Concomitant]
     Indication: CONSTIPATION
     Route: 065
     Dates: start: 20121026
  7. CORTANCYL [Concomitant]
     Indication: ASTHMA
     Route: 065
     Dates: start: 20121026
  8. MOPRAL (FRANCE) [Concomitant]
     Indication: GASTROOESOPHAGEAL REFLUX DISEASE
     Route: 065
     Dates: start: 20121030
  9. PREGABALIN [Concomitant]
     Route: 065
     Dates: start: 20121127
  10. GRANISETRON [Concomitant]
     Route: 065
     Dates: start: 20121127
  11. METOPIMAZINE [Concomitant]
     Dosage: PRN
     Route: 065
     Dates: start: 20121128
  12. LEXOMIL [Concomitant]
     Indication: ANXIETY
     Route: 065
     Dates: start: 20121213
  13. INEXIUM [Concomitant]
     Route: 065
     Dates: start: 201212
  14. ACUPAN [Concomitant]
     Route: 065
     Dates: start: 201212, end: 201302
  15. PRIMPERAN (FRANCE) [Concomitant]
     Indication: NAUSEA
     Route: 065
     Dates: start: 201212
  16. DIFFU K [Concomitant]
     Route: 065
     Dates: start: 201212
  17. AVLOCARDYL [Concomitant]
     Route: 065
     Dates: start: 201303
  18. ROCEPHINE [Concomitant]
     Indication: GASTROINTESTINAL HAEMORRHAGE
     Route: 065
     Dates: start: 201303
  19. PERFALGAN [Concomitant]
     Indication: PAIN
     Route: 065
     Dates: start: 201303
  20. LOVENOX [Concomitant]
  21. SPASFON [Concomitant]
     Indication: ABDOMINAL PAIN
     Route: 065
     Dates: start: 201303
  22. ERCEFURYL [Concomitant]
     Indication: DIARRHOEA
     Route: 065
     Dates: start: 20121218, end: 201302

REACTIONS (2)
  - Hypercalcaemia [Recovered/Resolved]
  - Oesophageal varices haemorrhage [Recovered/Resolved]
